FAERS Safety Report 9190625 (Version 1)
Quarter: 2013Q1

REPORT INFORMATION
  Report Type: Spontaneous
  Country: US (occurrence: US)
  Receive Date: 20130326
  Receipt Date: 20130326
  Transmission Date: 20140127
  Serious: Yes (Hospitalization)
  Sender: FDA-Public Use
  Company Number: US-JNJFOC-20130308999

PATIENT
  Sex: Female

DRUGS (2)
  1. VISINE [Suspect]
     Route: 048
  2. VISINE [Suspect]
     Indication: PRODUCT USED FOR UNKNOWN INDICATION
     Route: 048

REACTIONS (3)
  - Poisoning deliberate [Unknown]
  - Malaise [Unknown]
  - Victim of crime [None]
